FAERS Safety Report 18010579 (Version 3)
Quarter: 2021Q2

REPORT INFORMATION
  Report Type: Other
  Country: US (occurrence: US)
  Receive Date: 20200710
  Receipt Date: 20210412
  Transmission Date: 20210717
  Serious: Yes (Hospitalization)
  Sender: FDA-Public Use
  Company Number: US-ROCHE-2638774

PATIENT
  Sex: Female
  Weight: 64.47 kg

DRUGS (2)
  1. ESBRIET [Suspect]
     Active Substance: PIRFENIDONE
     Route: 048
  2. ESBRIET [Suspect]
     Active Substance: PIRFENIDONE
     Indication: IDIOPATHIC PULMONARY FIBROSIS
     Route: 048

REACTIONS (9)
  - Dehydration [Unknown]
  - Nausea [Recovered/Resolved with Sequelae]
  - Eructation [Recovered/Resolved with Sequelae]
  - Vomiting [Unknown]
  - Irritable bowel syndrome [Unknown]
  - Illness [Unknown]
  - Decreased appetite [Recovered/Resolved with Sequelae]
  - Exercise tolerance decreased [Unknown]
  - Pain [Unknown]
